FAERS Safety Report 22626699 (Version 15)
Quarter: 2025Q2

REPORT INFORMATION
  Report Type: Report from Study
  Country: US (occurrence: US)
  Receive Date: 20230621
  Receipt Date: 20250520
  Transmission Date: 20250716
  Serious: Yes (Other)
  Sender: TAKEDA
  Company Number: US-TAKEDA-2023TUS041976

PATIENT
  Age: 62 Year
  Sex: Female
  Weight: 61 kg

DRUGS (35)
  1. HUMAN IMMUNOGLOBULIN G [Suspect]
     Active Substance: HUMAN IMMUNOGLOBULIN G
     Indication: IgG deficiency
     Dosage: 14 GRAM, Q2WEEKS
     Dates: start: 20230105
  2. GAMMAGARD LIQUID [Suspect]
     Active Substance: HUMAN IMMUNOGLOBULIN G
     Indication: IgG deficiency
     Dosage: 14 GRAM, Q2WEEKS
     Dates: start: 20240712
  3. GAMMAGARD LIQUID [Suspect]
     Active Substance: HUMAN IMMUNOGLOBULIN G
     Dosage: 14 GRAM, Q2WEEKS
  4. FASENRA [Suspect]
     Active Substance: BENRALIZUMAB
     Indication: Product used for unknown indication
  5. RIZATRIPTAN [Concomitant]
     Active Substance: RIZATRIPTAN
  6. ALBUTEROL SULFATE [Concomitant]
     Active Substance: ALBUTEROL SULFATE
  7. TRELEGY ELLIPTA [Concomitant]
     Active Substance: FLUTICASONE FUROATE\UMECLIDINIUM BROMIDE\VILANTEROL TRIFENATATE
  8. PULMICORT FLEXHALER [Concomitant]
     Active Substance: BUDESONIDE
  9. VITAMIN D3 [Concomitant]
     Active Substance: CHOLECALCIFEROL
  10. FLONASE ALLERGY RELIEF [Concomitant]
     Active Substance: FLUTICASONE PROPIONATE
  11. POTASSIUM [Concomitant]
     Active Substance: POTASSIUM
  12. DIPHENHYDRAMINE [Concomitant]
     Active Substance: DIPHENHYDRAMINE
  13. HALOBETASOL PROPIONATE [Concomitant]
     Active Substance: HALOBETASOL PROPIONATE
  14. EXCEDRIN EXTRA STRENGTH [Concomitant]
     Active Substance: ACETAMINOPHEN\ASPIRIN\CAFFEINE
  15. MAGNESIUM [Concomitant]
     Active Substance: MAGNESIUM
  16. CALCIUM [Concomitant]
     Active Substance: CALCIUM
  17. LEVOTHYROXINE SODIUM [Concomitant]
     Active Substance: LEVOTHYROXINE SODIUM
  18. IRON [Concomitant]
     Active Substance: IRON
  19. EPINEPHRINE [Concomitant]
     Active Substance: EPINEPHRINE
  20. OXYCODONE AND ACETAMINOPHEN [Concomitant]
     Active Substance: ACETAMINOPHEN\OXYCODONE HYDROCHLORIDE
  21. ACYCLOVIR [Concomitant]
     Active Substance: ACYCLOVIR
  22. Rizatriptanum [Concomitant]
  23. LIDOCAINE [Concomitant]
     Active Substance: LIDOCAINE
  24. ALBUTEROL SULFATE [Concomitant]
     Active Substance: ALBUTEROL SULFATE
  25. PROGESTERONE [Concomitant]
     Active Substance: PROGESTERONE
  26. ACETAMINOPHEN [Concomitant]
     Active Substance: ACETAMINOPHEN
  27. DIPHENHYDRAMINE HYDROCHLORIDE [Concomitant]
     Active Substance: DIPHENHYDRAMINE HYDROCHLORIDE
  28. SODIUM CHLORIDE [Concomitant]
     Active Substance: SODIUM CHLORIDE
  29. LEVOFLOXACIN [Concomitant]
     Active Substance: LEVOFLOXACIN
  30. CYCLOBENZAPRINE HYDROCHLORIDE [Concomitant]
     Active Substance: CYCLOBENZAPRINE HYDROCHLORIDE
  31. PULMICORT TURBUHALER [Concomitant]
     Active Substance: BUDESONIDE
  32. EPIPEN [Concomitant]
     Active Substance: EPINEPHRINE
  33. BREZTRI [Concomitant]
     Active Substance: BUDESONIDE\FORMOTEROL\GLYCOPYRROLATE
  34. ESTRADIOL [Concomitant]
     Active Substance: ESTRADIOL
  35. BOTOX [Concomitant]
     Active Substance: ONABOTULINUMTOXINA

REACTIONS (24)
  - Impaired gastric emptying [Unknown]
  - Lyme disease [Unknown]
  - Arthritis [Unknown]
  - Haemoglobin abnormal [Unknown]
  - Infusion site irritation [Unknown]
  - Respiratory syncytial virus infection [Unknown]
  - Scar [Unknown]
  - Mass [Unknown]
  - COVID-19 [Unknown]
  - Respiratory disorder [Unknown]
  - Inappropriate schedule of product administration [Unknown]
  - Product dose omission issue [Unknown]
  - Dermatitis contact [Unknown]
  - Insurance issue [Unknown]
  - Product use issue [Unknown]
  - Tooth infection [Unknown]
  - Upper respiratory tract infection [Recovered/Resolved]
  - Sinusitis [Recovered/Resolved]
  - Infusion site mass [Unknown]
  - Rash [Unknown]
  - Infusion site erythema [Unknown]
  - Infusion site swelling [Unknown]
  - Dyspnoea [Not Recovered/Not Resolved]
  - Infusion site pain [Unknown]

NARRATIVE: CASE EVENT DATE: 20231201
